FAERS Safety Report 24131661 (Version 2)
Quarter: 2024Q3

REPORT INFORMATION
  Report Type: Spontaneous
  Country: JP (occurrence: JP)
  Receive Date: 20240724
  Receipt Date: 20240829
  Transmission Date: 20241017
  Serious: Yes (Other)
  Sender: PHARMACOSMOS
  Company Number: JP-NEBO-664687

PATIENT
  Age: 29 Year
  Sex: Female

DRUGS (3)
  1. NIFEDIPINE [Concomitant]
     Active Substance: NIFEDIPINE
  2. CALONAL [Concomitant]
     Active Substance: ACETAMINOPHEN
  3. FERRIC DERISOMALTOSE [Suspect]
     Active Substance: FERRIC DERISOMALTOSE
     Indication: Iron deficiency anaemia
     Dates: start: 20240624, end: 20240624

REACTIONS (4)
  - Condition aggravated [Recovered/Resolved]
  - Pruritus [Recovered/Resolved]
  - Rash [Recovered/Resolved]
  - Erythema multiforme [Recovered/Resolved]

NARRATIVE: CASE EVENT DATE: 20240619
